FAERS Safety Report 20982139 (Version 1)
Quarter: 2022Q2

REPORT INFORMATION
  Report Type: Spontaneous
  Country: CN (occurrence: None)
  Receive Date: 20220620
  Receipt Date: 20220620
  Transmission Date: 20220721
  Serious: Yes (Other)
  Sender: FDA-Public Use
  Company Number: CN-ROCHE-3119925

PATIENT
  Age: 37 Year
  Sex: Male

DRUGS (14)
  1. MABTHERA [Suspect]
     Active Substance: RITUXIMAB
     Indication: Diffuse large B-cell lymphoma
     Route: 065
  2. ETOPOSIDE [Concomitant]
     Active Substance: ETOPOSIDE
     Indication: Diffuse large B-cell lymphoma
  3. PREDNISONE [Concomitant]
     Active Substance: PREDNISONE
     Indication: Diffuse large B-cell lymphoma
  4. VINCRISTINE [Concomitant]
     Active Substance: VINCRISTINE
     Indication: Diffuse large B-cell lymphoma
  5. CYCLOPHOSPHAMIDE [Concomitant]
     Active Substance: CYCLOPHOSPHAMIDE
     Indication: Diffuse large B-cell lymphoma
  6. DOXORUBICIN [Concomitant]
     Active Substance: DOXORUBICIN
     Indication: Diffuse large B-cell lymphoma
  7. PIRARUBICIN [Concomitant]
     Active Substance: PIRARUBICIN
     Indication: Diffuse large B-cell lymphoma
  8. DEXAMETHASONE [Concomitant]
     Active Substance: DEXAMETHASONE
     Indication: Diffuse large B-cell lymphoma
  9. METHOTREXATE [Concomitant]
     Active Substance: METHOTREXATE
     Indication: Diffuse large B-cell lymphoma
  10. CYTARABINE [Concomitant]
     Active Substance: CYTARABINE
     Indication: Diffuse large B-cell lymphoma
  11. LEUCOVORIN CALCIUM [Concomitant]
     Active Substance: LEUCOVORIN CALCIUM
     Indication: Diffuse large B-cell lymphoma
  12. METHYLPREDNISOLONE [Concomitant]
     Active Substance: METHYLPREDNISOLONE
     Indication: Diffuse large B-cell lymphoma
  13. CISPLATIN [Concomitant]
     Active Substance: CISPLATIN
     Indication: Diffuse large B-cell lymphoma
  14. LENALIDOMIDE [Concomitant]
     Active Substance: LENALIDOMIDE
     Indication: Diffuse large B-cell lymphoma

REACTIONS (6)
  - Pyrexia [Unknown]
  - Diarrhoea [Unknown]
  - Pain in extremity [Unknown]
  - Drug ineffective [Unknown]
  - Cytokine release syndrome [Unknown]
  - Immune effector cell-associated neurotoxicity syndrome [Recovering/Resolving]
